FAERS Safety Report 12598055 (Version 7)
Quarter: 2017Q1

REPORT INFORMATION
  Report Type: Spontaneous
  Country: PL (occurrence: PL)
  Receive Date: 20160727
  Receipt Date: 20170127
  Transmission Date: 20170428
  Serious: Yes (Hospitalization, Other)
  Sender: FDA-Public Use
  Company Number: PL-TAKEDA-2016MPI006578

PATIENT
  Age: 80 Year
  Sex: Female
  Weight: 63 kg

DRUGS (31)
  1. EGIRAMLON [Concomitant]
     Indication: HYPERTENSION
     Dosage: 10 MG, QD
     Route: 048
     Dates: start: 2013
  2. EFFOX [Concomitant]
     Active Substance: ISOSORBIDE MONONITRATE
     Indication: HYPERTENSION
     Dosage: 50 MG, QD
     Route: 048
     Dates: start: 2013
  3. MYDOCALM FORTE [Concomitant]
     Indication: SCIATICA
     Dosage: 150 MG, BID
     Route: 048
     Dates: start: 20160530
  4. PREDNISONE. [Suspect]
     Active Substance: PREDNISONE
     Dosage: 100 MG, UNK
     Route: 048
     Dates: start: 20160608, end: 20160610
  5. GASEC [Concomitant]
     Dosage: 20 MG, BID
     Route: 048
     Dates: start: 20160607, end: 20160610
  6. KETOPROFEN. [Concomitant]
     Active Substance: KETOPROFEN
     Dosage: 0.1 G, QD
     Route: 065
  7. MELPHALAN [Suspect]
     Active Substance: MELPHALAN
     Indication: PLASMA CELL MYELOMA
     Dosage: 14 MG, UNK
     Route: 048
     Dates: start: 20160315, end: 20160318
  8. MELPHALAN [Suspect]
     Active Substance: MELPHALAN
     Dosage: 14 MG, UNK
     Route: 048
     Dates: start: 20160607, end: 20160610
  9. LETROX [Concomitant]
     Active Substance: LEVOTHYROXINE SODIUM
     Indication: HYPOTHYROIDISM
     Dosage: 100 ?G, QD
     Route: 048
     Dates: start: 2012
  10. HEVIRAN                            /00587301/ [Concomitant]
     Indication: INFECTION PROPHYLAXIS
     Dosage: 400 MG, BID
     Route: 048
     Dates: start: 20160315
  11. AVAMINA [Concomitant]
     Dosage: 850 MG, BID
     Route: 048
     Dates: start: 20160924
  12. TRAMAL [Concomitant]
     Active Substance: TRAMADOL
     Dosage: 0.05 G, BID
     Route: 065
  13. GENSULIN [Concomitant]
     Indication: TYPE 2 DIABETES MELLITUS
     Dosage: UNK
     Route: 065
     Dates: start: 20160920, end: 20160923
  14. VELCADE [Suspect]
     Active Substance: BORTEZOMIB
     Dosage: 1.7 MG, 1/WEEK
     Route: 058
     Dates: start: 20161004, end: 20161213
  15. PREDNISONE. [Suspect]
     Active Substance: PREDNISONE
     Indication: PLASMA CELL MYELOMA
     Dosage: 100 MG, UNK
     Route: 048
     Dates: start: 20160315, end: 20160318
  16. PREDNISONE. [Suspect]
     Active Substance: PREDNISONE
     Dosage: 100 MG, UNK
     Route: 048
     Dates: start: 20160427, end: 20160429
  17. GASEC [Concomitant]
     Dosage: 20 MG, UNK
     Route: 048
     Dates: start: 20160517, end: 20160517
  18. VELCADE [Suspect]
     Active Substance: BORTEZOMIB
     Indication: PLASMA CELL MYELOMA
     Dosage: 2.2 MG, 1/WEEK
     Route: 058
     Dates: start: 20160315, end: 20160614
  19. DARATUMUMAB [Suspect]
     Active Substance: DARATUMUMAB
     Indication: PLASMA CELL MYELOMA
     Dosage: 1008 MG, UNK
     Route: 042
     Dates: start: 20160315
  20. MELPHALAN [Suspect]
     Active Substance: MELPHALAN
     Dosage: 14 MG, UNK
     Route: 048
     Dates: start: 20160426, end: 20160429
  21. POLOCARD [Concomitant]
     Active Substance: ASPIRIN
     Indication: ANTIPLATELET THERAPY
     Dosage: 150 MG, QD
     Route: 048
     Dates: start: 2012
  22. AVAMINA [Concomitant]
     Indication: TYPE 2 DIABETES MELLITUS
     Dosage: 850 MG, BID
     Route: 048
     Dates: start: 2014, end: 20160920
  23. DICLOFENACUM NATRICUM [Concomitant]
     Indication: ARTHRALGIA
     Dosage: 75 MG, QD
     Route: 030
     Dates: start: 20160519, end: 20160528
  24. FORMETIC [Concomitant]
     Indication: TYPE 2 DIABETES MELLITUS
     Dosage: UNK
     Route: 048
     Dates: start: 20160920, end: 20160923
  25. BETO ZK [Concomitant]
     Active Substance: METOPROLOL SUCCINATE
     Indication: HYPERTENSION
     Dosage: 142.5 MG, QD
     Route: 048
     Dates: start: 2013
  26. CONTROLOC                          /01263201/ [Concomitant]
     Indication: GASTROINTESTINAL DISORDER THERAPY
     Dosage: 0.02 MG, BID
     Route: 048
     Dates: start: 20160315, end: 20160322
  27. BISEPTOL [Concomitant]
     Active Substance: SULFAMETHOXAZOLE\TRIMETHOPRIM
     Indication: INFECTION PROPHYLAXIS
     Dosage: 480 MG, BID
     Route: 048
     Dates: start: 20160315, end: 20160408
  28. GRANULOCYTE COLONY STIMULATING FACTOR [Concomitant]
     Active Substance: GRANULOCYTE COLONY-STIMULATING FACTOR NOS
     Indication: NEUTROPENIA
     Dosage: 0.5 ML, QD
     Route: 058
     Dates: start: 20160329, end: 20160402
  29. GASEC [Concomitant]
     Indication: GASTROINTESTINAL DISORDER THERAPY
     Dosage: 20 MG, QD
     Route: 048
     Dates: start: 20160322, end: 20160429
  30. GASEC [Concomitant]
     Dosage: 20 MG, BID
     Route: 048
     Dates: start: 20161004, end: 20161007
  31. ACECLOFENACUM [Concomitant]
     Indication: SCIATICA
     Dosage: 100 MG, QD
     Route: 048
     Dates: start: 20160530

REACTIONS (7)
  - Neutropenia [Unknown]
  - Polyneuropathy [Unknown]
  - Diarrhoea [Unknown]
  - Peripheral swelling [Unknown]
  - Rash [Unknown]
  - Intervertebral disc disorder [Unknown]
  - Paraparesis [Unknown]

NARRATIVE: CASE EVENT DATE: 2016
